FAERS Safety Report 6073036-5 (Version None)
Quarter: 2009Q1

REPORT INFORMATION
  Report Type: 
  Country: None (occurrence: None)
  Receive Date: 20090211
  Receipt Date: 20090209
  Transmission Date: 20090719
  Serious: Yes (Death, Life-Threatening)
  Sender: FDA-Public Use
  Company Number: US-ASTRAZENECA-2009UW03582

PATIENT
  Age: 86 Year
  Sex: Female

DRUGS (3)
  1. SEROQUEL [Suspect]
     Indication: AGGRESSION
     Route: 048
     Dates: start: 20081121
  2. SEROQUEL [Suspect]
     Route: 048
  3. NAMENDA [Concomitant]
     Dates: start: 20081101, end: 20081101

REACTIONS (1)
  - MYOCARDIAL INFARCTION [None]
